FAERS Safety Report 10413927 (Version 1)
Quarter: 2014Q3

REPORT INFORMATION
  Report Type: Spontaneous
  Country: LT (occurrence: LT)
  Receive Date: 20140827
  Receipt Date: 20140827
  Transmission Date: 20150326
  Serious: Yes (Hospitalization)
  Sender: FDA-Public Use
  Company Number: LT-ASTRAZENECA-2014SE61712

PATIENT
  Age: 90 Year
  Sex: Male

DRUGS (2)
  1. MEROPENEM. [Suspect]
     Active Substance: MEROPENEM
     Indication: PNEUMONIA
     Route: 042
     Dates: start: 20140807, end: 20140811
  2. CIPROFLOXACIN. [Concomitant]
     Active Substance: CIPROFLOXACIN
     Indication: PNEUMONIA
     Route: 041
     Dates: start: 20140804

REACTIONS (2)
  - Rash macular [Recovering/Resolving]
  - Haemorrhagic disorder [Recovering/Resolving]

NARRATIVE: CASE EVENT DATE: 20140811
